FAERS Safety Report 5681102-9 (Version None)
Quarter: 2008Q1

REPORT INFORMATION
  Report Type: 
  Country: None (occurrence: None)
  Receive Date: 20080325
  Receipt Date: 20080311
  Transmission Date: 20080703
  Serious: Yes (Other)
  Sender: FDA-Public Use
  Company Number: 2008AL001636

PATIENT
  Age: 34 Year
  Sex: Female

DRUGS (4)
  1. PROPRANOLOL HCL EXTENDED-RELEASE CAPSULES USP, 80MG (ALLEC) (PROPRANOL [Suspect]
     Indication: ANXIETY
     Dosage: 40 MG; PO
     Route: 048
  2. ZYPREXA [Concomitant]
  3. ZOPICLONE [Concomitant]
  4. CARBAMAZEPINE [Concomitant]

REACTIONS (3)
  - ALOPECIA [None]
  - TINNITUS [None]
  - WEIGHT INCREASED [None]
